FAERS Safety Report 20963815 (Version 3)
Quarter: 2022Q3

REPORT INFORMATION
  Report Type: Report from Study
  Country: US (occurrence: US)
  Receive Date: 20220615
  Receipt Date: 20220718
  Transmission Date: 20221027
  Serious: Yes (Other)
  Sender: FDA-Public Use
  Company Number: US-ABBVIE-22K-163-4389961-00

PATIENT
  Sex: Male

DRUGS (2)
  1. IMBRUVICA [Suspect]
     Active Substance: IBRUTINIB
     Indication: Chronic lymphocytic leukaemia
     Route: 048
     Dates: start: 20211117
  2. VITAMIN B12 [Suspect]
     Active Substance: CYANOCOBALAMIN
     Indication: Product used for unknown indication
     Dosage: SHOTS
     Route: 065

REACTIONS (6)
  - Cardiac pacemaker insertion [Unknown]
  - White blood cell count increased [Recovering/Resolving]
  - Platelet count abnormal [Unknown]
  - Wheezing [Unknown]
  - Heart rate increased [Unknown]
  - Cough [Unknown]
